FAERS Safety Report 12892172 (Version 1)
Quarter: 2016Q4

REPORT INFORMATION
  Report Type: Spontaneous
  Country: US (occurrence: US)
  Receive Date: 20161026
  Receipt Date: 20161026
  Transmission Date: 20170207
  Serious: Yes (Hospitalization)
  Sender: FDA-Public Use
  Company Number: None

PATIENT
  Age: 47 Year
  Sex: Female

DRUGS (1)
  1. IBRANCE [Suspect]
     Active Substance: PALBOCICLIB
     Indication: RESPIRATORY DISORDER
     Dosage: 125MG CAP 1 QD 21 DAYS PO
     Route: 048
     Dates: start: 20160615

REACTIONS (5)
  - Drug dose omission [None]
  - Constipation [None]
  - Nausea [None]
  - Vomiting [None]
  - Dehydration [None]

NARRATIVE: CASE EVENT DATE: 201610
